FAERS Safety Report 7794924-5 (Version None)
Quarter: 2011Q4

REPORT INFORMATION
  Report Type: 
  Country: None (occurrence: None)
  Receive Date: 20111004
  Receipt Date: 20110930
  Transmission Date: 20120403
  Serious: Yes (Death, Other)
  Sender: FDA-Public Use
  Company Number: ID-PFIZER INC-2011213045

PATIENT
  Sex: Male

DRUGS (2)
  1. SUTENT [Suspect]
     Indication: RENAL CANCER
     Dosage: 12.5 MG, 3X/DAY
     Route: 048
     Dates: start: 20110321, end: 20110411
  2. BISOPROLOL FUMARATE [Concomitant]

REACTIONS (5)
  - HAEMOGLOBIN DECREASED [None]
  - SYNCOPE [None]
  - BLOOD URINE PRESENT [None]
  - RENAL CANCER [None]
  - DISEASE PROGRESSION [None]
